FAERS Safety Report 8689889 (Version 2)
Quarter: 2012Q4

REPORT INFORMATION
  Report Type: 
  Country: US (occurrence: US)
  Receive Date: 20120727
  Receipt Date: 20121005
  Transmission Date: 20130627
  Serious: Yes (Other)
  Sender: FDA-Public Use
  Company Number: US-ASTRAZENECA-2012SE51277

PATIENT
  Age: 52 Year
  Sex: Male

DRUGS (1)
  1. NEXIUM [Suspect]
     Route: 048

REACTIONS (9)
  - Device occlusion [Unknown]
  - Arterial occlusive disease [Unknown]
  - Neoplasm malignant [Unknown]
  - Raynaud^s phenomenon [Unknown]
  - Osteoarthritis [Unknown]
  - Crohn^s disease [Unknown]
  - Mobility decreased [Unknown]
  - White blood cell count increased [Unknown]
  - Bronchitis [Unknown]
